FAERS Safety Report 4876338-0 (Version None)
Quarter: 2006Q1

REPORT INFORMATION
  Report Type: 
  Country: None (occurrence: None)
  Receive Date: 20060106
  Receipt Date: 20051223
  Transmission Date: 20060701
  Serious: Yes (Other)
  Sender: FDA-Public Use
  Company Number: B0405126A

PATIENT
  Age: 30 Year
  Sex: Male

DRUGS (7)
  1. EPIVIR [Suspect]
     Indication: HIV INFECTION
     Dates: start: 20040101
  2. STAVUDINE [Suspect]
     Indication: HIV INFECTION
     Dates: start: 20040101
  3. LOPINAVIR + RITONAVIR [Suspect]
     Indication: HIV INFECTION
     Dates: start: 20040101
  4. EFAVIRENZ [Suspect]
     Indication: HIV INFECTION
  5. CIPROFLOXACIN [Concomitant]
  6. CEFOTAXIME [Concomitant]
  7. RIFAMPICIN [Concomitant]

REACTIONS (9)
  - ABDOMINAL NEOPLASM [None]
  - ABSCESS [None]
  - GRANULOMA [None]
  - IMMUNE RECONSTITUTION SYNDROME [None]
  - INFLAMMATION [None]
  - LYMPHADENOPATHY [None]
  - MYCOBACTERIUM AVIUM COMPLEX INFECTION [None]
  - NECROSIS [None]
  - PYREXIA [None]
